FAERS Safety Report 4935055-9 (Version None)
Quarter: 2006Q1

REPORT INFORMATION
  Report Type: 
  Country: None (occurrence: None)
  Receive Date: 20060306
  Receipt Date: 20060306
  Transmission Date: 20060701
  Serious: No
  Sender: FDA-Public Use
  Company Number: None

PATIENT
  Age: 24 Year
  Sex: Female

DRUGS (1)
  1. VIGAMOX [Suspect]
     Indication: KERATITIS
     Route: 047

REACTIONS (2)
  - DRUG INEFFECTIVE [None]
  - IMPAIRED HEALING [None]
